FAERS Safety Report 12591551 (Version 1)
Quarter: 2016Q3

REPORT INFORMATION
  Report Type: Spontaneous
  Country: US (occurrence: None)
  Receive Date: 20160725
  Receipt Date: 20160725
  Transmission Date: 20161109
  Serious: No
  Sender: FDA-Public Use
  Company Number: None

PATIENT
  Sex: Male

DRUGS (3)
  1. IBRUTRON [Concomitant]
  2. TOUJEO [Suspect]
     Active Substance: INSULIN GLARGINE
  3. TRULICITY [Suspect]
     Active Substance: DULAGLUTIDE

REACTIONS (3)
  - Blood glucose increased [None]
  - Injection site discolouration [None]
  - Drug dose omission [None]
